FAERS Safety Report 6085950-5 (Version None)
Quarter: 2009Q1

REPORT INFORMATION
  Report Type: 
  Country: None (occurrence: None)
  Receive Date: 20090217
  Receipt Date: 20080319
  Transmission Date: 20090719
  Serious: Yes (Other)
  Sender: FDA-Public Use
  Company Number: MC200800153

PATIENT
  Age: 46 Year
  Sex: Male
  Weight: 77.1 kg

DRUGS (4)
  1. ANGIOMAX [Suspect]
     Indication: PERCUTANEOUS CORONARY INTERVENTION
     Dosage: 55 MG, 11 ML(5 MG/ML), BOLUS, INTRAVENOUS; 130 MG, 26 ML (5 MG/ML), HR, INTRAVENOUS; INTRAVENOUS
     Route: 040
     Dates: start: 20080319, end: 20080319
  2. ANGIOMAX [Suspect]
     Indication: PERCUTANEOUS CORONARY INTERVENTION
     Dosage: 55 MG, 11 ML(5 MG/ML), BOLUS, INTRAVENOUS; 130 MG, 26 ML (5 MG/ML), HR, INTRAVENOUS; INTRAVENOUS
     Route: 040
     Dates: start: 20080319, end: 20080319
  3. ANGIOMAX [Suspect]
     Indication: PERCUTANEOUS CORONARY INTERVENTION
     Dosage: 55 MG, 11 ML(5 MG/ML), BOLUS, INTRAVENOUS; 130 MG, 26 ML (5 MG/ML), HR, INTRAVENOUS; INTRAVENOUS
     Route: 040
     Dates: start: 20080319, end: 20080319
  4. CLOPIDOGREL [Suspect]
     Indication: PERCUTANEOUS CORONARY INTERVENTION
     Dosage: 600 MG, SINGLE, ORAL
     Route: 048
     Dates: start: 20080319, end: 20080319

REACTIONS (2)
  - CHEST PAIN [None]
  - CORONARY ARTERY THROMBOSIS [None]
